FAERS Safety Report 18181010 (Version 2)
Quarter: 2020Q3

REPORT INFORMATION
  Report Type: Report from Study
  Country: PL (occurrence: PL)
  Receive Date: 20200821
  Receipt Date: 20200903
  Transmission Date: 20201103
  Serious: Yes (Hospitalization)
  Sender: FDA-Public Use
  Company Number: PL-PFIZER INC-2020319568

PATIENT
  Age: 49 Year
  Sex: Male
  Weight: 120 kg

DRUGS (15)
  1. PEMBROLIZUMAB. [Suspect]
     Active Substance: PEMBROLIZUMAB
     Indication: METASTATIC RENAL CELL CARCINOMA
     Dosage: 200 MG, EVERY 3 WEEKS (Q3W)
     Route: 042
     Dates: start: 20170927, end: 20190826
  2. LORINDEN A [FLUMETASONE PIVALATE;SALICYLIC ACID] [Concomitant]
     Dosage: UNK
     Dates: start: 20200204
  3. ACTELSAR [Concomitant]
     Dosage: 80 MG
     Dates: start: 200601
  4. NEBILENIN [Concomitant]
     Dosage: 5 MG
     Dates: start: 200601
  5. CLEXANE [Concomitant]
     Active Substance: ENOXAPARIN SODIUM
     Dosage: 120 MG
     Dates: start: 20190919
  6. AXITINIB [Suspect]
     Active Substance: AXITINIB
     Dosage: 3 MG, 1X/DAY (CYCLE  47)
     Route: 048
     Dates: start: 20200728, end: 20200728
  7. LIPANTHYL [Concomitant]
     Active Substance: FENOFIBRATE
     Dosage: 160 MG
     Dates: start: 201401
  8. PEMBROLIZUMAB. [Suspect]
     Active Substance: PEMBROLIZUMAB
     Dosage: 200 MG, EVERY 3 WEEKS (Q3W) (CYCLE 35)
     Route: 042
     Dates: start: 20190912, end: 20190912
  9. LACIPIL [Concomitant]
     Active Substance: LACIDIPINE
     Dosage: 4 MG
     Dates: start: 20171004
  10. EFFERALGAN [Concomitant]
     Active Substance: ACETAMINOPHEN
     Dosage: 1000 MG
     Dates: start: 20170927
  11. POSTERISAN [ESCHERICHIA COLI] [Concomitant]
     Dosage: UNK
     Dates: start: 20190121
  12. ARGOSULFAN [Concomitant]
     Dosage: UNK
     Dates: start: 20200204
  13. AXITINIB [Suspect]
     Active Substance: AXITINIB
     Indication: METASTATIC RENAL CELL CARCINOMA
     Dosage: 5 MG, 2X/DAY (STARTING DOSE: 5 MG TWICE DAILY (BID), FLUCTUATED DOSAGE)
     Route: 048
     Dates: start: 20170927, end: 20200727
  14. REASEC [Concomitant]
     Active Substance: ATROPINE SULFATE\DIPHENOXYLATE HYDROCHLORIDE
     Dosage: 1 DF
     Dates: start: 20190711
  15. COLINOX [Concomitant]
     Dosage: 1 DF
     Route: 048
     Dates: start: 20191031

REACTIONS (1)
  - Pulmonary thrombosis [Not Recovered/Not Resolved]

NARRATIVE: CASE EVENT DATE: 20200811
